FAERS Safety Report 5073173-8 (Version None)
Quarter: 2006Q3

REPORT INFORMATION
  Report Type: 
  Country: None (occurrence: None)
  Receive Date: 20060802
  Receipt Date: 20060726
  Transmission Date: 20061208
  Serious: Yes (Life-Threatening, Hospitalization, Other)
  Sender: FDA-Public Use
  Company Number: US-2006-020383

PATIENT
  Sex: Female

DRUGS (2)
  1. BETAPACE [Suspect]
  2. LEVAQUIN [Suspect]
     Indication: INFECTION
     Dates: start: 20050701

REACTIONS (4)
  - ATRIAL FIBRILLATION [None]
  - CARDIAC ARREST [None]
  - DRUG INTERACTION [None]
  - INFECTION [None]
